FAERS Safety Report 8296718-3 (Version None)
Quarter: 2012Q2

REPORT INFORMATION
  Report Type: 
  Country: None (occurrence: None)
  Receive Date: 20120418
  Receipt Date: 20120314
  Transmission Date: 20120825
  Serious: Yes (Other)
  Sender: FDA-Public Use
  Company Number: US-BAXTER-2012BH007744

PATIENT
  Sex: Male

DRUGS (1)
  1. ADVATE [Suspect]
     Route: 065

REACTIONS (1)
  - FACTOR VIII INHIBITION [None]
